FAERS Safety Report 9223634 (Version 1)
Quarter: 2013Q2

REPORT INFORMATION
  Report Type: Report from Study
  Country: SE (occurrence: SE)
  Receive Date: 20130410
  Receipt Date: 20130410
  Transmission Date: 20140414
  Serious: Yes (Other)
  Sender: FDA-Public Use
  Company Number: SE-UCBSA-082527

PATIENT
  Age: 67 Year
  Sex: Male

DRUGS (3)
  1. CIMZIA [Suspect]
     Indication: RHEUMATOID ARTHRITIS
     Dosage: 200, 200 MG
     Route: 058
     Dates: start: 20121101, end: 20130205
  2. PREDNISOLONE [Concomitant]
     Dosage: 7.5, 7.5 MG
     Dates: start: 20100511
  3. METHOTREXATE [Concomitant]
     Dosage: 20 MG, 20 MG
     Dates: start: 20100511

REACTIONS (2)
  - Dermatitis psoriasiform [Recovered/Resolved with Sequelae]
  - Rash [Recovered/Resolved with Sequelae]
